FAERS Safety Report 10251385 (Version 1)
Quarter: 2014Q2

REPORT INFORMATION
  Report Type: Spontaneous
  Country: BR (occurrence: BR)
  Receive Date: 20140622
  Receipt Date: 20140622
  Transmission Date: 20141212
  Serious: Yes (Other)
  Sender: FDA-Public Use
  Company Number: BR-JNJFOC-20140611810

PATIENT
  Sex: Male

DRUGS (3)
  1. PARACETAMOL [Suspect]
     Indication: PRODUCT USED FOR UNKNOWN INDICATION
     Route: 065
  2. SUTENT [Concomitant]
     Route: 065
  3. SUTENT [Concomitant]
     Route: 065

REACTIONS (2)
  - Drug-induced liver injury [Unknown]
  - Incorrect dose administered [Unknown]
